FAERS Safety Report 15898784 (Version 2)
Quarter: 2019Q1

REPORT INFORMATION
  Report Type: Spontaneous
  Country: FR (occurrence: FR)
  Receive Date: 20190201
  Receipt Date: 20190211
  Transmission Date: 20190417
  Serious: Yes (Hospitalization)
  Sender: FDA-Public Use
  Company Number: FR-STRIDES ARCOLAB LIMITED-2019SP000868

PATIENT
  Age: 30 Year
  Sex: Male
  Weight: 93 kg

DRUGS (1)
  1. POTASSIUM CHLORIDE. [Suspect]
     Active Substance: POTASSIUM CHLORIDE
     Indication: PRODUCT USED FOR UNKNOWN INDICATION
     Dosage: 600 MG, UNKNOWN (THE EQUIVALENT OF 312MG OF POTASSIUM OR 8 MEQ OF POTASSIUM IONS)
     Route: 048

REACTIONS (8)
  - Bundle branch block right [Unknown]
  - Asthenia [Unknown]
  - Toxicity to various agents [Unknown]
  - Electrocardiogram T wave peaked [Unknown]
  - Intentional product misuse [Unknown]
  - Syncope [Unknown]
  - Hyperkalaemia [Recovered/Resolved]
  - Intentional overdose [Unknown]
